FAERS Safety Report 23115041 (Version 6)
Quarter: 2024Q2

REPORT INFORMATION
  Report Type: Spontaneous
  Country: GB (occurrence: GB)
  Receive Date: 20231027
  Receipt Date: 20240508
  Transmission Date: 20240716
  Serious: Yes (Other)
  Sender: FDA-Public Use
  Company Number: GB-BRISTOL-MYERS SQUIBB COMPANY-2023-066465

PATIENT
  Age: 57 Year
  Sex: Female

DRUGS (12)
  1. NULOJIX [Suspect]
     Active Substance: BELATACEPT
     Indication: Renal transplant
     Dosage: VIAL, DOSE : 340 MG; FREQ : ^4 WEEKLY^
     Route: 042
  2. NULOJIX [Suspect]
     Active Substance: BELATACEPT
     Dosage: VIAL
     Route: 042
  3. NULOJIX [Suspect]
     Active Substance: BELATACEPT
     Route: 042
     Dates: start: 201511
  4. SODIUM CHLORIDE [Concomitant]
     Active Substance: SODIUM CHLORIDE
     Indication: Product used for unknown indication
     Dosage: INF1000M 1^
     Route: 042
  5. CITALOPRAM [Concomitant]
     Active Substance: CITALOPRAM\CITALOPRAM HYDROBROMIDE
     Indication: Depressed mood
     Dosage: DOSE INCREASED
     Route: 048
  6. CITALOPRAM [Concomitant]
     Active Substance: CITALOPRAM\CITALOPRAM HYDROBROMIDE
     Indication: Anxiety
  7. AMLODIPINE [Concomitant]
     Active Substance: AMLODIPINE BESYLATE
     Indication: Blood pressure measurement
     Route: 048
  8. LEVOTHYROXINE [Concomitant]
     Active Substance: LEVOTHYROXINE\LEVOTHYROXINE SODIUM
     Indication: Blood pressure measurement
  9. LIOTHYRONINE [Concomitant]
     Active Substance: LIOTHYRONINE
     Indication: Blood pressure measurement
  10. MYCOPHENOLIC ACID [Concomitant]
     Active Substance: MYCOPHENOLIC ACID
     Indication: Blood pressure measurement
  11. PREDNISOLONE [Concomitant]
     Active Substance: PREDNISOLONE
     Indication: Blood pressure measurement
     Dosage: DAILY
  12. OMEPRAZOLE [Concomitant]
     Active Substance: DONEPEZIL HYDROCHLORIDE\OMEPRAZOLE\OMEPRAZOLE MAGNESIUM
     Indication: Blood pressure measurement

REACTIONS (12)
  - Complications of transplant surgery [Unknown]
  - Malaise [Recovered/Resolved]
  - Feeling jittery [Recovered/Resolved]
  - Anxiety disorder [Recovered/Resolved]
  - Oropharyngeal pain [Unknown]
  - Headache [Recovering/Resolving]
  - Fatigue [Unknown]
  - Stress [Unknown]
  - Nausea [Unknown]
  - Dizziness [Unknown]
  - Blood pressure increased [Unknown]
  - Depression [Unknown]

NARRATIVE: CASE EVENT DATE: 20231023
